FAERS Safety Report 5697992-X (Version None)
Quarter: 2008Q2

REPORT INFORMATION
  Report Type: 
  Country: None (occurrence: None)
  Receive Date: 20080408
  Receipt Date: 20080326
  Transmission Date: 20081010
  Serious: Yes (Other)
  Sender: FDA-Public Use
  Company Number: JP-ASTRAZENECA-2008SE01561

PATIENT
  Sex: Male
  Weight: 58 kg

DRUGS (2)
  1. BLOPRESS TABLETS 8 [Suspect]
     Indication: HYPERTENSION
     Route: 048
     Dates: end: 20050301
  2. TAKEPRON OD TABLETS 15 [Suspect]
     Indication: GASTRITIS
     Route: 048
     Dates: end: 20050301

REACTIONS (1)
  - INTERSTITIAL LUNG DISEASE [None]
